FAERS Safety Report 25004508 (Version 1)
Quarter: 2025Q1

REPORT INFORMATION
  Report Type: Spontaneous
  Country: US (occurrence: US)
  Receive Date: 20250224
  Receipt Date: 20250224
  Transmission Date: 20250409
  Serious: Yes (Other)
  Sender: MYLAN
  Company Number: US-MYLANLABS-2025M1015492

PATIENT
  Sex: Female
  Weight: 74.38 kg

DRUGS (1)
  1. ISOTRETINOIN [Suspect]
     Active Substance: ISOTRETINOIN
     Indication: Acne
     Dosage: 120 MILLIGRAM, QD
     Dates: start: 20240730, end: 20241030

REACTIONS (1)
  - Maternal exposure during pregnancy [Unknown]
